FAERS Safety Report 7461878-0 (Version None)
Quarter: 2011Q2

REPORT INFORMATION
  Report Type: 
  Country: None (occurrence: None)
  Receive Date: 20110506
  Receipt Date: 20091119
  Transmission Date: 20111010
  Serious: Yes (Hospitalization, Other)
  Sender: FDA-Public Use
  Company Number: US-BAYER-200939988NA

PATIENT
  Age: 51 Year
  Sex: Male
  Weight: 74.83 kg

DRUGS (45)
  1. TRASYLOL [Suspect]
     Indication: AORTIC VALVE REPLACEMENT
     Dosage: 1 ML, ONCE (INITIAL)
     Route: 042
     Dates: start: 20030311
  2. HUMULIN R [Concomitant]
     Dosage: 100 U, UNK
  3. AMOXICILLIN [Concomitant]
  4. LASIX [Concomitant]
  5. ZOLPIDEM TARTRATE [Concomitant]
  6. ROCURONIUM [Concomitant]
     Dosage: 70 MG, UNK
     Route: 042
     Dates: start: 20030311
  7. FRESH FROZEN PLASMA [Concomitant]
     Dosage: 8 U, UNK
     Route: 042
     Dates: start: 20030311
  8. TRAZODONE [Concomitant]
  9. ZAROXOLYN [Concomitant]
  10. HUMULIN N [Concomitant]
     Dosage: 100 U, UNK
  11. BUPROPION HYDROCHLORIDE [Concomitant]
  12. CRYOPRECIPITATES [Concomitant]
     Dosage: 6 U, UNK
     Route: 042
     Dates: start: 20030311
  13. ALLOPURINOL [Concomitant]
  14. CAPOTEN [Concomitant]
  15. DEMADEX [Concomitant]
  16. FERROUS FUMARATE [Concomitant]
  17. ABILIFY [Concomitant]
  18. STRATTERA [Concomitant]
  19. CALCIUM CARBONATE [Concomitant]
  20. COREG [Concomitant]
  21. DIGOXIN [Concomitant]
  22. LORAZEPAM [Concomitant]
  23. CITALOPRAM HYDROBROMIDE [Concomitant]
  24. VERSED [Concomitant]
     Dosage: UNK
     Route: 042
     Dates: start: 20030311
  25. AMICAR [Concomitant]
     Dosage: 10 G, UNK
     Route: 042
     Dates: start: 20030311
  26. TRASYLOL [Suspect]
     Indication: CORONARY ARTERY BYPASS
     Dosage: 100 ML (LOADING)
     Route: 042
     Dates: start: 20030311
  27. OMEPRAZOLE [Concomitant]
  28. SUFENTA PRESERVATIVE FREE [Concomitant]
     Dosage: 60 MG, UNK
     Route: 042
     Dates: start: 20030311
  29. ANCEF [Concomitant]
     Dosage: 1 G, UNK
     Route: 042
     Dates: start: 20030311
  30. NEURONTIN [Concomitant]
  31. PRILOSEC [Concomitant]
  32. VICODIN [Concomitant]
  33. TRASYLOL [Suspect]
     Dosage: 25 ML/HR (INFUSION)
     Route: 042
     Dates: start: 20030311
  34. EFFEXOR XR [Concomitant]
  35. TRIAMCINOLONE ACETONIDE [Concomitant]
  36. HEPARIN [Concomitant]
     Dosage: UNK
     Route: 042
     Dates: start: 20030311
  37. PROPOFOL [Concomitant]
     Dosage: 100 MG, UNK
     Route: 042
     Dates: start: 20030311
  38. LEVOPHED [Concomitant]
     Dosage: UNK
     Route: 042
     Dates: start: 20030311
  39. INSULIN [Concomitant]
     Dosage: 5 UNITS/HR DRIP
     Route: 042
     Dates: start: 20030311
  40. CALCIUM CHLORIDE [Concomitant]
     Dosage: 1 G, UNK
     Route: 042
     Dates: start: 20030311
  41. DIFLUCAN [Concomitant]
  42. HUMALOG [Concomitant]
  43. DOPAMINE HCL [Concomitant]
     Dosage: 3/5/3 UNK
     Route: 042
     Dates: start: 20030311
  44. NIMBEX [Concomitant]
     Dosage: 4/6 UNK
     Route: 042
     Dates: start: 20030311
  45. PLATELETS [Concomitant]
     Dosage: 2 U, UNK
     Route: 042
     Dates: start: 20030311

REACTIONS (11)
  - RENAL FAILURE [None]
  - RENAL INJURY [None]
  - UNEVALUABLE EVENT [None]
  - INJURY [None]
  - STRESS [None]
  - ANXIETY [None]
  - RENAL IMPAIRMENT [None]
  - PAIN [None]
  - FEAR [None]
  - ANHEDONIA [None]
  - EMOTIONAL DISTRESS [None]
